FAERS Safety Report 20667694 (Version 2)
Quarter: 2022Q2

REPORT INFORMATION
  Report Type: Spontaneous
  Country: JP (occurrence: JP)
  Receive Date: 20220404
  Receipt Date: 20220422
  Transmission Date: 20220721
  Serious: Yes (Other)
  Sender: FDA-Public Use
  Company Number: JP-002147023-NVSJ2022JP004454

PATIENT
  Age: 70 Year
  Sex: Female

DRUGS (23)
  1. LUCENTIS [Suspect]
     Active Substance: RANIBIZUMAB
     Indication: Age-related macular degeneration
     Route: 031
     Dates: start: 20170707
  2. LUCENTIS [Suspect]
     Active Substance: RANIBIZUMAB
     Route: 031
  3. LUCENTIS [Suspect]
     Active Substance: RANIBIZUMAB
     Route: 031
  4. LUCENTIS [Suspect]
     Active Substance: RANIBIZUMAB
     Route: 031
  5. LUCENTIS [Suspect]
     Active Substance: RANIBIZUMAB
     Route: 031
  6. LUCENTIS [Suspect]
     Active Substance: RANIBIZUMAB
     Route: 031
  7. LUCENTIS [Suspect]
     Active Substance: RANIBIZUMAB
     Route: 031
  8. LUCENTIS [Suspect]
     Active Substance: RANIBIZUMAB
     Route: 031
  9. LUCENTIS [Suspect]
     Active Substance: RANIBIZUMAB
     Route: 031
  10. LUCENTIS [Suspect]
     Active Substance: RANIBIZUMAB
     Route: 031
  11. LUCENTIS [Suspect]
     Active Substance: RANIBIZUMAB
     Route: 031
  12. LUCENTIS [Suspect]
     Active Substance: RANIBIZUMAB
     Route: 031
  13. LUCENTIS [Suspect]
     Active Substance: RANIBIZUMAB
     Route: 031
  14. LUCENTIS [Suspect]
     Active Substance: RANIBIZUMAB
     Route: 031
  15. LUCENTIS [Suspect]
     Active Substance: RANIBIZUMAB
     Route: 031
  16. LUCENTIS [Suspect]
     Active Substance: RANIBIZUMAB
     Route: 031
  17. LUCENTIS [Suspect]
     Active Substance: RANIBIZUMAB
     Route: 031
  18. LUCENTIS [Suspect]
     Active Substance: RANIBIZUMAB
     Route: 031
  19. LUCENTIS [Suspect]
     Active Substance: RANIBIZUMAB
     Route: 031
     Dates: start: 20210903
  20. LUCENTIS [Suspect]
     Active Substance: RANIBIZUMAB
     Route: 031
     Dates: start: 20211112
  21. LUCENTIS [Suspect]
     Active Substance: RANIBIZUMAB
     Route: 031
     Dates: start: 20210121
  22. LUCENTIS [Suspect]
     Active Substance: RANIBIZUMAB
     Route: 031
     Dates: start: 20220318
  23. BEOVU [Suspect]
     Active Substance: BROLUCIZUMAB-DBLL
     Indication: Age-related macular degeneration
     Route: 031
     Dates: start: 20211217, end: 20211217

REACTIONS (8)
  - Keratic precipitates [Recovered/Resolved]
  - Non-infectious endophthalmitis [Recovered/Resolved]
  - Visual impairment [Recovered/Resolved]
  - Anterior chamber cell [Recovered/Resolved]
  - Vitreous floaters [Recovered/Resolved]
  - Retinal exudates [Recovered/Resolved]
  - Therapeutic product effect incomplete [Unknown]
  - Disease progression [Unknown]

NARRATIVE: CASE EVENT DATE: 20210127
